FAERS Safety Report 8046432-4 (Version None)
Quarter: 2012Q1

REPORT INFORMATION
  Report Type: 
  Country: None (occurrence: None)
  Receive Date: 20120113
  Receipt Date: 20120106
  Transmission Date: 20120608
  Serious: Yes (Other)
  Sender: FDA-Public Use
  Company Number: US-US-EMD SERONO, INC.-7026543

PATIENT
  Sex: Female

DRUGS (5)
  1. UNSPECIFIED MEDICATION [Concomitant]
     Indication: HYPERTENSION
  2. IBUPROFEN [Concomitant]
     Indication: PREMEDICATION
  3. ANTIDEPRESSANT [Concomitant]
     Indication: DEPRESSION
  4. REBIF [Suspect]
     Indication: PRODUCT USED FOR UNKNOWN INDICATION
     Route: 058
     Dates: start: 20101101
  5. REBIF [Suspect]
     Route: 058

REACTIONS (6)
  - NIGHT SWEATS [None]
  - MALAISE [None]
  - HYPOAESTHESIA [None]
  - BLEPHAROSPASM [None]
  - HEART RATE IRREGULAR [None]
  - DYSGEUSIA [None]
